FAERS Safety Report 10512349 (Version 1)
Quarter: 2014Q4

REPORT INFORMATION
  Report Type: Spontaneous
  Country: DE (occurrence: DE)
  Receive Date: 20141010
  Receipt Date: 20141010
  Transmission Date: 20150528
  Serious: Yes (Hospitalization, Other)
  Sender: FDA-Public Use
  Company Number: DE-GILEAD-2014-0117392

PATIENT
  Age: 50 Year
  Sex: Male
  Weight: 80 kg

DRUGS (11)
  1. RANOLAZINE [Suspect]
     Active Substance: RANOLAZINE
     Dosage: 1000 UNK, UNK
     Route: 048
     Dates: start: 20140903
  2. RANOLAZINE [Suspect]
     Active Substance: RANOLAZINE
     Dosage: UNK
  3. RANOLAZINE [Suspect]
     Active Substance: RANOLAZINE
     Indication: CORONARY ARTERY DISEASE
     Dosage: 1500 UNK, UNK
     Route: 048
     Dates: start: 20140820, end: 201409
  4. OXCARBAZEPINE. [Suspect]
     Active Substance: OXCARBAZEPINE
     Indication: EPILEPSY
     Dosage: 900 MG, QD
     Route: 065
  5. LEVETIRACETAM. [Suspect]
     Active Substance: LEVETIRACETAM
     Dosage: 2000 UNK, UNK
     Route: 065
     Dates: start: 201409
  6. RIZATRIPTAN [Concomitant]
     Active Substance: RIZATRIPTAN
  7. VALPROAT [Suspect]
     Active Substance: VALPROATE SODIUM
     Indication: EPILEPSY
     Dosage: 1500 MG, QD
     Route: 065
     Dates: end: 201409
  8. VALPROAT [Suspect]
     Active Substance: VALPROATE SODIUM
     Dosage: 3000 UNK, UNK
     Route: 065
     Dates: start: 201409
  9. SUMATRIPTAN SUCCINATE. [Concomitant]
     Active Substance: SUMATRIPTAN SUCCINATE
  10. RANOLAZINE [Suspect]
     Active Substance: RANOLAZINE
     Indication: ANGINA PECTORIS
     Dosage: 1000 MG, QD
     Route: 048
     Dates: start: 20140804, end: 20140820
  11. LEVETIRACETAM. [Suspect]
     Active Substance: LEVETIRACETAM
     Indication: EPILEPSY
     Dosage: 2500 MG, QD
     Route: 065
     Dates: end: 201409

REACTIONS (2)
  - Seizure [Recovered/Resolved]
  - Hyponatraemia [Recovered/Resolved]

NARRATIVE: CASE EVENT DATE: 20140906
